FAERS Safety Report 21818508 (Version 1)
Quarter: 2023Q1

REPORT INFORMATION
  Report Type: Spontaneous
  Country: US (occurrence: US)
  Receive Date: 20230104
  Receipt Date: 20230104
  Transmission Date: 20230418
  Serious: Yes (Other)
  Sender: FDA-Public Use
  Company Number: US-COOPERSURGICAL, INC.-US-2022CPS003347

PATIENT
  Age: 59 Year
  Sex: Female
  Weight: 76.19 kg

DRUGS (1)
  1. PARAGARD T 380A [Suspect]
     Active Substance: COPPER
     Indication: Product used for unknown indication
     Route: 015

REACTIONS (6)
  - Foreign body in reproductive tract [Not Recovered/Not Resolved]
  - Complication of device removal [Not Recovered/Not Resolved]
  - Device material issue [Unknown]
  - Menopause [Unknown]
  - Device use issue [Unknown]
  - Oligomenorrhoea [Unknown]

NARRATIVE: CASE EVENT DATE: 20220809
